FAERS Safety Report 4546493-0 (Version None)
Quarter: 2005Q1

REPORT INFORMATION
  Report Type: 
  Country: None (occurrence: None)
  Receive Date: 20050103
  Receipt Date: 20041214
  Transmission Date: 20050727
  Serious: No
  Sender: FDA-Public Use
  Company Number: GBS041115875

PATIENT
  Age: 25 Year
  Sex: Female

DRUGS (1)
  1. STRATTERA (ATOMOXEITNE HYDROCHLORIDE) [Suspect]
     Indication: ATTENTION DEFICIT/HYPERACTIVITY DISORDER
     Dosage: 40 MG
     Dates: start: 20041014

REACTIONS (3)
  - JAUNDICE [None]
  - MENTAL DISORDER [None]
  - VIRAL INFECTION [None]
